FAERS Safety Report 11820108 (Version 1)
Quarter: 2015Q4

REPORT INFORMATION
  Report Type: Spontaneous
  Country: BA (occurrence: BA)
  Receive Date: 20151210
  Receipt Date: 20151210
  Transmission Date: 20160305
  Serious: Yes (Hospitalization)
  Sender: FDA-Public Use
  Company Number: BA-ROCHE-1675347

PATIENT
  Age: 34 Year
  Sex: Female

DRUGS (4)
  1. PACLITAXEL. [Suspect]
     Active Substance: PACLITAXEL
     Indication: UTERINE CANCER
     Route: 065
  2. CAPECITABINE. [Suspect]
     Active Substance: CAPECITABINE
     Indication: UTERINE CANCER
     Route: 065
  3. AVASTIN [Suspect]
     Active Substance: BEVACIZUMAB
     Indication: UTERINE CANCER
     Route: 065
     Dates: start: 201509
  4. CISPLATINE [Suspect]
     Active Substance: CISPLATIN
     Indication: UTERINE CANCER
     Route: 065

REACTIONS (2)
  - Hypersensitivity [Unknown]
  - Drug intolerance [Unknown]
